FAERS Safety Report 21498475 (Version 1)
Quarter: 2022Q4

REPORT INFORMATION
  Report Type: Spontaneous
  Country: IT (occurrence: IT)
  Receive Date: 20221024
  Receipt Date: 20221024
  Transmission Date: 20230113
  Serious: Yes (Other)
  Sender: FDA-Public Use
  Company Number: IT-BAYER-2022A141571

PATIENT
  Age: 58 Year
  Sex: Male
  Weight: 55 kg

DRUGS (9)
  1. ASPIRIN [Interacting]
     Active Substance: ASPIRIN
     Indication: Antiplatelet therapy
  2. ANTIHEMOPHILIC FACTOR, HUMAN RECOMBINANT [Suspect]
     Active Substance: ANTIHEMOPHILIC FACTOR, HUMAN RECOMBINANT
     Indication: Factor VIII deficiency
     Dosage: 3000 IU, QD
     Dates: end: 201709
  3. CLOPIDOGREL [Interacting]
     Active Substance: CLOPIDOGREL BISULFATE
     Indication: Antiplatelet therapy
  4. DOLUTEGRAVIR [Concomitant]
     Active Substance: DOLUTEGRAVIR
     Indication: HIV antibody positive
  5. DOLUTEGRAVIR [Concomitant]
     Active Substance: DOLUTEGRAVIR
     Indication: Hepatitis C antibody positive
  6. DARUNAVIR [Concomitant]
     Active Substance: DARUNAVIR
     Indication: HIV antibody positive
  7. DARUNAVIR [Concomitant]
     Active Substance: DARUNAVIR
     Indication: Hepatitis C antibody positive
  8. NUWIQ [Concomitant]
     Active Substance: ANTIHEMOPHILIC FACTOR, HUMAN RECOMBINANT
     Indication: Factor VIII deficiency
     Dosage: 3000 IU, QD
     Dates: start: 201709
  9. NUWIQ [Concomitant]
     Active Substance: ANTIHEMOPHILIC FACTOR, HUMAN RECOMBINANT
     Indication: Factor VIII deficiency
     Dosage: 3000 IU, TIW

REACTIONS (5)
  - Haemarthrosis [None]
  - Haemarthrosis [None]
  - Haemarthrosis [None]
  - Labelled drug-drug interaction medication error [None]
  - Drug ineffective [None]
